FAERS Safety Report 18649417 (Version 1)
Quarter: 2020Q4

REPORT INFORMATION
  Report Type: Spontaneous
  Country: US (occurrence: US)
  Receive Date: 20201222
  Receipt Date: 20201222
  Transmission Date: 20210114
  Serious: Yes (Life-Threatening, Hospitalization, Disabling)
  Sender: FDA-Public Use
  Company Number: None

PATIENT
  Age: 27 Year
  Sex: Male
  Weight: 58.5 kg

DRUGS (1)
  1. ESCITALOPRAM [Suspect]
     Active Substance: ESCITALOPRAM OXALATE
     Indication: ANXIETY
     Route: 048
     Dates: start: 20200203, end: 20200209

REACTIONS (6)
  - Cognitive disorder [None]
  - Head discomfort [None]
  - Anxiety [None]
  - Pain [None]
  - Loss of employment [None]
  - Hypokinesia [None]

NARRATIVE: CASE EVENT DATE: 20200203
